FAERS Safety Report 10422445 (Version 1)
Quarter: 2014Q3

REPORT INFORMATION
  Report Type: Report from Study
  Country: CA (occurrence: CA)
  Receive Date: 20140901
  Receipt Date: 20140901
  Transmission Date: 20150326
  Serious: Yes (Other)
  Sender: FDA-Public Use
  Company Number: CA-BRISTOL-MYERS SQUIBB COMPANY-21343207

PATIENT
  Sex: Female

DRUGS (9)
  1. PREVACID [Concomitant]
     Active Substance: LANSOPRAZOLE
  2. METHOTREXATE [Concomitant]
     Active Substance: METHOTREXATE
  3. ABATACEPT [Suspect]
     Active Substance: ABATACEPT
     Indication: RHEUMATOID ARTHRITIS
     Dosage: 125 MG, Q4WK
     Route: 058
     Dates: start: 20140226
  4. METFORMIN [Concomitant]
     Active Substance: METFORMIN HYDROCHLORIDE
  5. CRESTOR [Concomitant]
     Active Substance: ROSUVASTATIN CALCIUM
  6. LEVOTHYROXINE [Concomitant]
     Active Substance: LEVOTHYROXINE
  7. EXTERNAL-PREDNISONE [Concomitant]
  8. FOLIC ACID. [Concomitant]
     Active Substance: FOLIC ACID
  9. OXYBUTYNIN [Concomitant]
     Active Substance: OXYBUTYNIN

REACTIONS (2)
  - Tooth disorder [Unknown]
  - Arthropathy [Unknown]
